FAERS Safety Report 16245408 (Version 1)
Quarter: 2019Q2

REPORT INFORMATION
  Report Type: Spontaneous
  Country: CN (occurrence: CN)
  Receive Date: 20190426
  Receipt Date: 20190426
  Transmission Date: 20190711
  Serious: Yes (Other)
  Sender: FDA-Public Use
  Company Number: CN-ASTRAZENECA-2019SE62092

PATIENT
  Age: 26663 Day
  Sex: Male
  Weight: 56 kg

DRUGS (5)
  1. NORMAL SALINE [Concomitant]
     Active Substance: SODIUM CHLORIDE
     Dosage: 100ML
  2. PULMICORT RESPULES [Suspect]
     Active Substance: BUDESONIDE
     Indication: ASTHMA
     Route: 055
     Dates: start: 20190319, end: 20190319
  3. BRICANYL [Concomitant]
     Active Substance: TERBUTALINE SULFATE
     Indication: TRACHEAL DISORDER
     Route: 055
     Dates: start: 20190319, end: 20190319
  4. METHYLPREDNISOLONE. [Concomitant]
     Active Substance: METHYLPREDNISOLONE
     Dosage: 40MGIVGTT
  5. OXYGEN. [Concomitant]
     Active Substance: OXYGEN
     Dosage: INHALATION (3L/MIN)

REACTIONS (2)
  - Asthma [Recovered/Resolved]
  - Chest discomfort [Recovered/Resolved]

NARRATIVE: CASE EVENT DATE: 20190319
